FAERS Safety Report 4955018-7 (Version None)
Quarter: 2006Q1

REPORT INFORMATION
  Report Type: 
  Country: None (occurrence: None)
  Receive Date: 20060322
  Receipt Date: 20060310
  Transmission Date: 20060701
  Serious: Yes (Hospitalization)
  Sender: FDA-Public Use
  Company Number: 200610927BWH

PATIENT
  Age: 55 Year
  Sex: Male
  Weight: 191 kg

DRUGS (7)
  1. NEXAVAR [Suspect]
     Indication: RENAL CELL CARCINOMA STAGE UNSPECIFIED
     Dosage: SEE IMAGE
     Route: 048
     Dates: start: 20060120, end: 20060213
  2. NEXAVAR [Suspect]
     Indication: RENAL CELL CARCINOMA STAGE UNSPECIFIED
     Dosage: SEE IMAGE
     Route: 048
     Dates: start: 20060302
  3. ASPIRIN [Suspect]
     Indication: ATRIAL FIBRILLATION
     Dosage: 81 MG, TOTAL DAILY
     Dates: start: 20050201, end: 20060213
  4. CARTIA XG [Concomitant]
  5. NEURONTIN [Concomitant]
  6. LEXAPRO [Concomitant]
  7. CARTIA XT [Concomitant]

REACTIONS (12)
  - ALOPECIA [None]
  - ASTHENIA [None]
  - BLOOD PRESSURE SYSTOLIC DECREASED [None]
  - DIZZINESS [None]
  - DYSPHONIA [None]
  - FAECES DISCOLOURED [None]
  - GASTRITIS EROSIVE [None]
  - HAEMORRHAGE [None]
  - OESOPHAGEAL PAIN [None]
  - PAIN IN EXTREMITY [None]
  - PALPITATIONS [None]
  - PLANTAR FASCIITIS [None]
